FAERS Safety Report 5682970-7 (Version None)
Quarter: 2008Q1

REPORT INFORMATION
  Report Type: 
  Country: None (occurrence: None)
  Receive Date: 20080327
  Receipt Date: 20080320
  Transmission Date: 20080703
  Serious: Yes (Life-Threatening)
  Sender: FDA-Public Use
  Company Number: FR-MERCK-0803FRA00043

PATIENT
  Age: 48 Year
  Sex: Male

DRUGS (17)
  1. CANCIDAS [Suspect]
     Indication: MUCORMYCOSIS
     Route: 042
     Dates: start: 20071121, end: 20071228
  2. POSACONAZOLE [Suspect]
     Indication: MUCORMYCOSIS
     Route: 048
     Dates: start: 20071121, end: 20071231
  3. DARUNAVIR [Concomitant]
     Indication: HIV INFECTION
     Route: 048
     Dates: start: 20071124, end: 20071221
  4. DARUNAVIR [Concomitant]
     Route: 048
     Dates: start: 20080129
  5. ETRAVIRINE [Concomitant]
     Indication: HIV INFECTION
     Route: 048
     Dates: start: 20071124, end: 20071231
  6. ETRAVIRINE [Concomitant]
     Route: 048
     Dates: start: 20080129
  7. RITONAVIR [Concomitant]
     Indication: HIV INFECTION
     Route: 048
     Dates: start: 20071124, end: 20071231
  8. RITONAVIR [Concomitant]
     Route: 048
     Dates: start: 20080129
  9. ISENTRESS [Concomitant]
     Indication: HIV INFECTION
     Route: 048
     Dates: start: 20071124, end: 20071231
  10. ISENTRESS [Concomitant]
     Route: 048
     Dates: start: 20080129
  11. ENFUVIRTIDE [Concomitant]
     Indication: HIV INFECTION
     Route: 058
     Dates: start: 20071124, end: 20071231
  12. ENFUVIRTIDE [Concomitant]
     Route: 058
     Dates: start: 20080129
  13. LAMIVUDINE [Concomitant]
     Indication: HIV INFECTION
     Route: 048
     Dates: start: 20071124, end: 20071231
  14. LAMIVUDINE [Concomitant]
     Route: 048
     Dates: start: 20080129
  15. SULFAMETHOXAZOLE AND TRIMETHOPRIM [Concomitant]
     Indication: OPPORTUNISTIC INFECTION PROPHYLAXIS
     Route: 048
  16. OXYCODONE HYDROCHLORIDE [Concomitant]
     Indication: PAIN
     Route: 048
  17. VORICONAZOLE [Concomitant]
     Indication: MUCORMYCOSIS
     Route: 065
     Dates: end: 20071120

REACTIONS (2)
  - CYTOLYTIC HEPATITIS [None]
  - JAUNDICE [None]
